FAERS Safety Report 21005855 (Version 1)
Quarter: 2022Q2

REPORT INFORMATION
  Report Type: Report from Study
  Country: US (occurrence: US)
  Receive Date: 20220624
  Receipt Date: 20220624
  Transmission Date: 20220721
  Serious: Yes (Hospitalization, Other)
  Sender: FDA-Public Use
  Company Number: US-TAKEDA-2022TUS039960

PATIENT
  Age: 54 Year
  Sex: Female
  Weight: 63 kg

DRUGS (55)
  1. TEDUGLUTIDE [Suspect]
     Active Substance: TEDUGLUTIDE
     Indication: Short-bowel syndrome
     Dosage: 3.8 MILLIGRAM, QD
     Route: 042
     Dates: start: 20211005
  2. TEDUGLUTIDE [Suspect]
     Active Substance: TEDUGLUTIDE
     Indication: Short-bowel syndrome
     Dosage: 3.8 MILLIGRAM, QD
     Route: 042
     Dates: start: 20211005
  3. TEDUGLUTIDE [Suspect]
     Active Substance: TEDUGLUTIDE
     Indication: Short-bowel syndrome
     Dosage: 3.8 MILLIGRAM, QD
     Route: 042
     Dates: start: 20211005
  4. TEDUGLUTIDE [Suspect]
     Active Substance: TEDUGLUTIDE
     Indication: Short-bowel syndrome
     Dosage: 3.8 MILLIGRAM, QD
     Route: 042
     Dates: start: 20211005
  5. TEDUGLUTIDE [Suspect]
     Active Substance: TEDUGLUTIDE
     Dosage: 2.1 MILLILITER
     Route: 042
  6. TEDUGLUTIDE [Suspect]
     Active Substance: TEDUGLUTIDE
     Dosage: 2.1 MILLILITER
     Route: 042
  7. TEDUGLUTIDE [Suspect]
     Active Substance: TEDUGLUTIDE
     Dosage: 2.1 MILLILITER
     Route: 042
  8. TEDUGLUTIDE [Suspect]
     Active Substance: TEDUGLUTIDE
     Dosage: 2.1 MILLILITER
     Route: 042
  9. VANCOMYCIN [Concomitant]
     Active Substance: VANCOMYCIN
     Indication: Device related sepsis
     Dosage: 1 GRAM, Q12 HR
     Route: 042
     Dates: start: 20220610, end: 20220612
  10. VANCOMYCIN [Concomitant]
     Active Substance: VANCOMYCIN
     Dosage: 0.5 MILLILITER, Q12H
     Route: 042
     Dates: start: 20220612
  11. VANCOMYCIN [Concomitant]
     Active Substance: VANCOMYCIN
     Dosage: 750 MILLIGRAM
     Route: 065
     Dates: start: 20220612, end: 20220622
  12. VANCOMYCIN [Concomitant]
     Active Substance: VANCOMYCIN
     Dosage: UNK
     Route: 042
     Dates: start: 20220610, end: 20220620
  13. ACETAMINOPHEN [Concomitant]
     Active Substance: ACETAMINOPHEN
     Indication: Catheter site pain
     Dosage: 1000 MILLIGRAM, Q8HR
     Route: 042
     Dates: start: 20220610, end: 20220610
  14. ACETAMINOPHEN [Concomitant]
     Active Substance: ACETAMINOPHEN
     Dosage: 1000 MILLIGRAM, Q8HR
     Route: 048
     Dates: start: 20220609
  15. OXYCODONE [Concomitant]
     Active Substance: OXYCODONE
     Indication: Back pain
     Dosage: 10 MILLIGRAM
     Route: 042
     Dates: start: 20220610, end: 20220612
  16. OXYCODONE [Concomitant]
     Active Substance: OXYCODONE
     Dosage: 15 MILLIGRAM, Q6HR
     Route: 048
  17. MAGNESIUM SULFATE [Concomitant]
     Active Substance: MAGNESIUM SULFATE
     Indication: Hypovitaminosis
     Dosage: 1 GRAM, 3/WEEK
     Route: 058
     Dates: start: 20220609
  18. MAGNESIUM SULFATE [Concomitant]
     Active Substance: MAGNESIUM SULFATE
     Dosage: 2 GRAM, QD
     Route: 042
     Dates: start: 20220613, end: 20220613
  19. MAGNESIUM SULFATE [Concomitant]
     Active Substance: MAGNESIUM SULFATE
     Dosage: 2 GRAM, Q2HR
     Route: 042
     Dates: start: 20220611, end: 20220611
  20. MAGNESIUM SULFATE [Concomitant]
     Active Substance: MAGNESIUM SULFATE
     Dosage: 5 GRAM, QD
     Route: 058
  21. PFIZER-BIONTECH COVID-19 VACCINE [Concomitant]
     Active Substance: TOZINAMERAN
     Indication: COVID-19 immunisation
     Dosage: UNK
     Route: 065
     Dates: start: 20210501
  22. PFIZER-BIONTECH COVID-19 VACCINE [Concomitant]
     Active Substance: TOZINAMERAN
     Dosage: UNK
     Route: 065
     Dates: start: 20210410
  23. INFLUENZA VIRUS VACCINE [Concomitant]
     Active Substance: INFLUENZA VIRUS VACCINE
     Indication: Immunisation
     Dosage: UNK
     Route: 065
     Dates: start: 20200610
  24. ONDANSETRON [Concomitant]
     Active Substance: ONDANSETRON
     Indication: Nausea
     Dosage: 4 MILLIGRAM, Q4HR
     Route: 042
     Dates: start: 20220610, end: 20220611
  25. ONDANSETRON [Concomitant]
     Active Substance: ONDANSETRON
     Indication: Vomiting
     Dosage: 4 MILLIGRAM, QD
     Route: 042
     Dates: start: 20220610, end: 20220610
  26. ONDANSETRON [Concomitant]
     Active Substance: ONDANSETRON
     Dosage: 4 MILLIGRAM, Q6HR
     Route: 042
     Dates: start: 20220611, end: 20220611
  27. ONDANSETRON [Concomitant]
     Active Substance: ONDANSETRON
     Dosage: 8 MILLIGRAM
     Route: 048
  28. POTASSIUM CHLORIDE [Concomitant]
     Active Substance: POTASSIUM CHLORIDE
     Dosage: 20 MILLIEQUIVALENT
     Route: 048
     Dates: start: 20220610, end: 20220611
  29. ALBUTEROL [Concomitant]
     Active Substance: ALBUTEROL
     Indication: Dyspnoea
     Dosage: 180 MICROGRAM, Q6HR
     Route: 055
     Dates: start: 20220609, end: 20220613
  30. SODIUM CHLORIDE [Concomitant]
     Active Substance: SODIUM CHLORIDE
     Dosage: 750 MILLILITER
     Route: 042
     Dates: start: 20220612
  31. SODIUM CHLORIDE [Concomitant]
     Active Substance: SODIUM CHLORIDE
     Dosage: 5 MILLIEQUIVALENT, QD
     Route: 042
     Dates: start: 20220612
  32. GUAR GUM [Concomitant]
     Active Substance: GUAR GUM
     Dosage: 4 GRAM, Q12H
     Route: 048
     Dates: start: 20220612, end: 20220622
  33. PANCRELIPASE [Concomitant]
     Active Substance: PANCRELIPASE
     Dosage: 2 DOSAGE FORM
     Route: 065
     Dates: start: 20220612, end: 20220612
  34. PANCRELIPASE [Concomitant]
     Active Substance: PANCRELIPASE
     Dosage: 1 DOSAGE FORM
     Route: 048
     Dates: start: 20220609
  35. LOMOTIL [Concomitant]
     Active Substance: ATROPINE SULFATE\DIPHENOXYLATE HYDROCHLORIDE
     Dosage: 4 GRAM
     Route: 048
     Dates: start: 20220612, end: 20220612
  36. LOMOTIL [Concomitant]
     Active Substance: ATROPINE SULFATE\DIPHENOXYLATE HYDROCHLORIDE
     Dosage: 5 MILLIGRAM, BID
     Route: 048
     Dates: start: 20220609
  37. LOMOTIL [Concomitant]
     Active Substance: ATROPINE SULFATE\DIPHENOXYLATE HYDROCHLORIDE
     Dosage: 2 DOSAGE FORM, TID
     Route: 048
     Dates: start: 20220609
  38. CYANOCOBALAMIN [Concomitant]
     Active Substance: CYANOCOBALAMIN
     Dosage: 1000 MICROGRAM
     Route: 048
     Dates: start: 20220611
  39. CYANOCOBALAMIN [Concomitant]
     Active Substance: CYANOCOBALAMIN
     Dosage: 100 MICROGRAM
     Route: 048
     Dates: start: 20220609, end: 20220609
  40. CYANOCOBALAMIN [Concomitant]
     Active Substance: CYANOCOBALAMIN
     Dosage: 1 DOSAGE FORM
     Route: 048
  41. LOPERAMIDE [Concomitant]
     Active Substance: LOPERAMIDE
     Dosage: 4 MILLIGRAM, QID
     Route: 048
     Dates: start: 20220609
  42. APIXABAN [Concomitant]
     Active Substance: APIXABAN
     Dosage: 1 DOSAGE FORM
     Route: 048
     Dates: start: 20220609
  43. GLUTAMINE [Concomitant]
     Active Substance: GLUTAMINE
     Dosage: 15 GRAM, BID
     Route: 048
     Dates: start: 20220609, end: 20220709
  44. VITAMIN A [Concomitant]
     Active Substance: VITAMIN A
     Dosage: 10000 INTERNATIONAL UNIT, QD
     Route: 048
     Dates: start: 20220609
  45. LEVETIRACETAM [Concomitant]
     Active Substance: LEVETIRACETAM
     Dosage: 250 MILLIGRAM, BID
     Route: 048
     Dates: start: 20220609
  46. FERROUS SULFATE [Concomitant]
     Active Substance: FERROUS SULFATE
     Dosage: 250 MILLIGRAM, BID
     Route: 048
     Dates: start: 20220609
  47. PANTOPRAZOLE [Concomitant]
     Active Substance: PANTOPRAZOLE
     Dosage: 40 MILLIGRAM, QD
     Route: 048
     Dates: start: 20220609
  48. PYRIDOXINE [Concomitant]
     Active Substance: PYRIDOXINE
     Dosage: 50 MILLIGRAM, QD
     Route: 048
     Dates: start: 20220609
  49. PYRIDOXINE [Concomitant]
     Active Substance: PYRIDOXINE
     Dosage: 1 DOSAGE FORM, 1/WEEK
     Route: 065
  50. CHOLECALCIFEROL [Concomitant]
     Active Substance: CHOLECALCIFEROL
     Dosage: 10 MICROGRAM, QD
     Route: 048
     Dates: start: 20220609
  51. ASCORBIC ACID [Concomitant]
     Active Substance: ASCORBIC ACID
     Dosage: 500 MILLIGRAM, QD
     Route: 048
     Dates: start: 20220609
  52. SERTRALINE [Concomitant]
     Active Substance: SERTRALINE HYDROCHLORIDE
     Dosage: 100 MILLIGRAM, QD
     Route: 048
     Dates: start: 20220609
  53. CALCIUM CARBONATE [Concomitant]
     Active Substance: CALCIUM CARBONATE
     Dosage: 0.5 MILLIGRAM, BID
     Route: 065
     Dates: start: 20220609
  54. CLONAZEPAM [Concomitant]
     Active Substance: CLONAZEPAM
     Dosage: 0.5 MILLIGRAM, QD
     Route: 048
     Dates: start: 20220609
  55. ALCOHOL [Concomitant]
     Active Substance: ALCOHOL
     Dosage: 1 DOSAGE FORM, BID
     Route: 065

REACTIONS (7)
  - Sepsis [Recovered/Resolved]
  - Hypokalaemia [Not Recovered/Not Resolved]
  - Hyponatraemia [Not Recovered/Not Resolved]
  - Hypomagnesaemia [Recovered/Resolved]
  - Hypocalcaemia [Not Recovered/Not Resolved]
  - Condition aggravated [Not Recovered/Not Resolved]
  - Anaemia [Not Recovered/Not Resolved]

NARRATIVE: CASE EVENT DATE: 20220609
